FAERS Safety Report 25137315 (Version 4)
Quarter: 2025Q4

REPORT INFORMATION
  Report Type: Spontaneous
  Country: EU (occurrence: EU)
  Receive Date: 20250329
  Receipt Date: 20251030
  Transmission Date: 20260118
  Serious: Yes (Hospitalization, Other)
  Sender: SANDOZ
  Company Number: EU-JNJFOC-20250336282

PATIENT
  Sex: Female
  Weight: 69.9 kg

DRUGS (5)
  1. DEXAMETHASONE [Suspect]
     Active Substance: DEXAMETHASONE
     Indication: Plasma cell myeloma
     Dosage: LAST ADMINISTRATION ON 10-FEB-202530  DAY^S AFTER THERAPY 12-MAR-2025 (START DATE 24-SEP-2024)
     Route: 042
     Dates: start: 20240924
  2. DARZALEX [Suspect]
     Active Substance: DARATUMUMAB
     Indication: Plasma cell myeloma
     Dosage: 24-SEP-2024 00:00 LAST ADMINISTRATION 10-FEB-202530 DAYS  AFTER THERAPY:12-MAR-2025
     Route: 042
  3. LENALIDOMIDE [Suspect]
     Active Substance: LENALIDOMIDE
     Indication: Plasma cell myeloma
     Dosage: LAST ADMINISTRATION ON 02-MAR-202430  DAY^S AFTER THERAPY 01-04-2025 (START DATE 24-SEP-2024)
     Route: 048
     Dates: start: 20240924
  4. POMALIDOMIDE [Suspect]
     Active Substance: POMALIDOMIDE
     Indication: Plasma cell myeloma
     Dosage: 4 MG LAST DOSE BEFORE SAE: 15-SEPT-202530 DAYS AFTER THERAPY: 15-OCT-2025 (START DATE 02-SEP-2025)
     Route: 048
     Dates: start: 20250902
  5. VELCADE [Suspect]
     Active Substance: BORTEZOMIB
     Indication: Plasma cell myeloma
     Dosage: 1.3  MG/M2 ,02-SEP-2025 00:00 LAST DOSE BEFORE SAE: 12-SEP-202530 DAYS AFTER THERAPY: 12-OCT-2025
     Route: 058

REACTIONS (8)
  - General physical health deterioration [Recovered/Resolved]
  - Nausea [Not Recovered/Not Resolved]
  - Decreased appetite [Not Recovered/Not Resolved]
  - Anaemia [Unknown]
  - Dyspnoea [Unknown]
  - Diarrhoea [Unknown]
  - Thrombocytopenia [Unknown]
  - Neutropenia [Unknown]
